FAERS Safety Report 20217320 (Version 2)
Quarter: 2023Q2

REPORT INFORMATION
  Report Type: Spontaneous
  Country: US (occurrence: US)
  Receive Date: 20211222
  Receipt Date: 20230530
  Transmission Date: 20230722
  Serious: Yes (Other)
  Sender: FDA-Public Use
  Company Number: US-PFIZER INC-202101772340

PATIENT
  Age: 74 Year
  Sex: Male

DRUGS (1)
  1. VYNDAMAX [Suspect]
     Active Substance: TAFAMIDIS
     Dosage: 61 MG

REACTIONS (24)
  - Atrial fibrillation [Unknown]
  - Carotid artery stenosis [Unknown]
  - Cerebrovascular accident [Unknown]
  - Type 2 diabetes mellitus [Unknown]
  - Sinus node dysfunction [Unknown]
  - Nephrolithiasis [Unknown]
  - Cataract nuclear [Unknown]
  - Joint arthroplasty [Unknown]
  - Hyperkalaemia [Unknown]
  - Acute kidney injury [Unknown]
  - Cardiac amyloidosis [Unknown]
  - Vitamin B12 deficiency [Unknown]
  - Spinal stenosis [Unknown]
  - Coronary artery disease [Unknown]
  - Infected dermal cyst [Unknown]
  - Meibomian gland dysfunction [Unknown]
  - Dermatochalasis [Unknown]
  - Hypermetropia [Unknown]
  - Astigmatism [Unknown]
  - Presbyopia [Unknown]
  - Left ventricular hypertrophy [Unknown]
  - Hypertension [Unknown]
  - Hyperlipidaemia [Unknown]
  - Bradyphrenia [Unknown]
